FAERS Safety Report 16026950 (Version 1)
Quarter: 2019Q1

REPORT INFORMATION
  Report Type: Spontaneous
  Country: US (occurrence: US)
  Receive Date: 20190303
  Receipt Date: 20190303
  Transmission Date: 20190418
  Serious: No
  Sender: FDA-Public Use
  Company Number: US-IMPAX LABORATORIES, LLC-2018-IPXL-00308

PATIENT
  Age: 65 Year
  Sex: Male
  Weight: 91 kg

DRUGS (12)
  1. RYTARY [Suspect]
     Active Substance: CARBIDOPA\LEVODOPA
     Dosage: 23.75/95 MG AND 36.25/145 MG, ONE CAPSULE EACH, FOUR TIMES PER DAY
     Route: 048
     Dates: start: 2018, end: 2018
  2. PRAMIPEXOLE. [Concomitant]
     Active Substance: PRAMIPEXOLE
     Indication: PARKINSON^S DISEASE
     Dosage: UNK, TID
     Route: 048
  3. AMLODIPINE [Concomitant]
     Active Substance: AMLODIPINE BESYLATE
     Indication: HYPERTENSION
     Dosage: UNK
     Route: 048
  4. RYTARY [Suspect]
     Active Substance: CARBIDOPA\LEVODOPA
     Dosage: 36.25/145MG; FOUR CAPSULES THREE TIMES DAILY
     Route: 048
     Dates: start: 201712
  5. RYTARY [Suspect]
     Active Substance: CARBIDOPA\LEVODOPA
     Dosage: 48.75/195 MG AND 61.25/245 MG, TWO DOSES
     Route: 048
     Dates: start: 2018
  6. RYTARY [Suspect]
     Active Substance: CARBIDOPA\LEVODOPA
     Dosage: THREE CAPSULES OF 48.75/ 195 MG AND ONE CAPSULE OF 61.25/245 MG
     Route: 048
     Dates: start: 2018
  7. RYTARY [Suspect]
     Active Substance: CARBIDOPA\LEVODOPA
     Dosage: 48.75/195MG 2 CAPSULES FIVE TIMES DAILY
     Route: 048
  8. RYTARY [Suspect]
     Active Substance: CARBIDOPA\LEVODOPA
     Indication: PARKINSON^S DISEASE
     Dosage: UNK
     Route: 048
     Dates: start: 201711, end: 2017
  9. RYTARY [Suspect]
     Active Substance: CARBIDOPA\LEVODOPA
     Dosage: 48.75/195MG 2 CAPSULES, 4 /DAY
     Route: 048
     Dates: start: 20180220, end: 2018
  10. LISINOPRIL. [Concomitant]
     Active Substance: LISINOPRIL
     Indication: HYPERTENSION
     Dosage: UNK
     Route: 065
  11. RYTARY [Suspect]
     Active Substance: CARBIDOPA\LEVODOPA
     Dosage: 36.25/145MG; 3 CAPSULES 5 TIMES A DAY
     Route: 048
     Dates: end: 2018
  12. ATORVASTATIN [Concomitant]
     Active Substance: ATORVASTATIN
     Indication: BLOOD CHOLESTEROL INCREASED
     Dosage: UNK
     Route: 048

REACTIONS (8)
  - Freezing phenomenon [Not Recovered/Not Resolved]
  - Drug effect delayed [Unknown]
  - Gait inability [Recovering/Resolving]
  - Hypokinesia [Unknown]
  - Dyskinesia [Recovering/Resolving]
  - Musculoskeletal stiffness [Unknown]
  - Therapeutic response shortened [Unknown]
  - Drug effect incomplete [Unknown]

NARRATIVE: CASE EVENT DATE: 201711
